FAERS Safety Report 4680796-4 (Version None)
Quarter: 2005Q2

REPORT INFORMATION
  Report Type: 
  Country: None (occurrence: None)
  Receive Date: 20050601
  Receipt Date: 20050601
  Transmission Date: 20051028
  Serious: Yes (Other)
  Sender: FDA-Public Use
  Company Number: None

PATIENT
  Sex: Male
  Weight: 39.0093 kg

DRUGS (3)
  1. ADVAIR DISKUS 250/50 [Suspect]
     Indication: ASTHMA
     Dosage: 250 BID ORAL
     Route: 048
     Dates: start: 20030501, end: 20050525
  2. ADVAIR DISKUS 250/50 [Suspect]
     Indication: BRONCHOPULMONARY DYSPLASIA
     Dosage: 250 BID ORAL
     Route: 048
     Dates: start: 20030501, end: 20050525
  3. ADVAIR DISKUS 250/50 [Suspect]
     Indication: CHRONIC OBSTRUCTIVE PULMONARY DISEASE
     Dosage: 250 BID ORAL
     Route: 048
     Dates: start: 20030501, end: 20050525

REACTIONS (1)
  - SKIN PAPILLOMA [None]
